FAERS Safety Report 23059784 (Version 1)
Quarter: 2023Q4

REPORT INFORMATION
  Report Type: Report from Study
  Country: IT (occurrence: IT)
  Receive Date: 20231012
  Receipt Date: 20231012
  Transmission Date: 20240110
  Serious: Yes (Hospitalization, Other)
  Sender: FDA-Public Use
  Company Number: IT-GILEAD-2023-0646620

PATIENT

DRUGS (1)
  1. SACITUZUMAB GOVITECAN-HZIY [Suspect]
     Active Substance: SACITUZUMAB GOVITECAN-HZIY
     Indication: Bladder cancer
     Dosage: 7.5 MG/KG CYCLE DAYS 1-8 Q 21 DAYS
     Route: 042
     Dates: start: 20230914

REACTIONS (2)
  - Blood creatinine increased [Recovered/Resolved]
  - Vesical fistula [Recovered/Resolved]
